FAERS Safety Report 13835488 (Version 1)
Quarter: 2017Q3

REPORT INFORMATION
  Report Type: Spontaneous
  Country: JP (occurrence: JP)
  Receive Date: 20170804
  Receipt Date: 20170804
  Transmission Date: 20171127
  Serious: Yes (Other)
  Sender: FDA-Public Use
  Company Number: JP-SUN PHARMACEUTICAL INDUSTRIES LTD-2017RR-146502

PATIENT
  Age: 17 Year
  Sex: Female

DRUGS (9)
  1. MIDAZOLAM [Suspect]
     Active Substance: MIDAZOLAM HYDROCHLORIDE
     Dosage: ADDITIONAL ADMINISTRATION 4 TIMES A DAY
     Route: 042
  2. LABETALOL [Suspect]
     Active Substance: LABETALOL\LABETALOL HYDROCHLORIDE
     Indication: PAROXYSMAL SYMPATHETIC HYPERACTIVITY
     Dosage: MAX. 200 MG/DAY
     Route: 065
  3. PREDNISOLONE. [Concomitant]
     Active Substance: PREDNISOLONE
     Indication: ACUTE DISSEMINATED ENCEPHALOMYELITIS
     Dosage: 50 MG, UNK
     Route: 065
  4. METHYLPREDNISOLONE. [Concomitant]
     Active Substance: METHYLPREDNISOLONE
     Indication: ACUTE DISSEMINATED ENCEPHALOMYELITIS
     Dosage: 1 G, DAILY
     Route: 065
  5. DIAZEPAM. [Suspect]
     Active Substance: DIAZEPAM
     Indication: PAROXYSMAL SYMPATHETIC HYPERACTIVITY
     Dosage: UNK
     Route: 042
  6. PROPRANOLOL [Suspect]
     Active Substance: PROPRANOLOL HYDROCHLORIDE
     Indication: PAROXYSMAL SYMPATHETIC HYPERACTIVITY
     Dosage: 5 MG, UNK
     Route: 065
  7. CLONIDINE. [Suspect]
     Active Substance: CLONIDINE
     Dosage: INCREASED GRADUALLY TO 900 MICROGRAMS, DAILY
     Route: 065
  8. MIDAZOLAM [Suspect]
     Active Substance: MIDAZOLAM HYDROCHLORIDE
     Indication: PAROXYSMAL SYMPATHETIC HYPERACTIVITY
     Dosage: 10 MG, DAILY
     Route: 042
     Dates: end: 200701
  9. CLONIDINE. [Suspect]
     Active Substance: CLONIDINE
     Indication: PAROXYSMAL SYMPATHETIC HYPERACTIVITY
     Dosage: 225 MICROGRAMS, DAILY
     Route: 065

REACTIONS (3)
  - Off label use [Unknown]
  - Drug ineffective [Unknown]
  - Respiratory depression [Unknown]
